FAERS Safety Report 16248931 (Version 1)
Quarter: 2019Q2

REPORT INFORMATION
  Report Type: Report from Study
  Country: ES (occurrence: ES)
  Receive Date: 20190429
  Receipt Date: 20190429
  Transmission Date: 20190711
  Serious: Yes (Hospitalization)
  Sender: FDA-Public Use
  Company Number: ES-ACCORD-124618

PATIENT
  Age: 78 Year
  Sex: Male

DRUGS (4)
  1. FUROSEMIDE. [Suspect]
     Active Substance: FUROSEMIDE
     Indication: CARDIAC FAILURE
     Route: 065
     Dates: start: 20150331
  2. TRANGOREX [Concomitant]
     Active Substance: AMIODARONE HYDROCHLORIDE
     Indication: ATRIAL FIBRILLATION
     Route: 048
     Dates: start: 20150713, end: 20180329
  3. EUTIROX [Concomitant]
     Active Substance: LEVOTHYROXINE SODIUM
     Indication: HYPOTENSION
     Route: 048
     Dates: start: 20160419
  4. SPIRONOLACTONE. [Interacting]
     Active Substance: SPIRONOLACTONE
     Indication: CARDIAC FAILURE
     Route: 048
     Dates: start: 20150331, end: 20180329

REACTIONS (3)
  - Acute kidney injury [Recovered/Resolved]
  - Drug interaction [Unknown]
  - Hyperkalaemia [Recovered/Resolved]

NARRATIVE: CASE EVENT DATE: 20180329
